FAERS Safety Report 7994889-7 (Version None)
Quarter: 2011Q4

REPORT INFORMATION
  Report Type: 
  Country: None (occurrence: None)
  Receive Date: 20111220
  Receipt Date: 20111212
  Transmission Date: 20120403
  Serious: Yes (Life-Threatening, Hospitalization, Other)
  Sender: FDA-Public Use
  Company Number: JP-ROCHE-780606

PATIENT
  Age: 76 Year
  Sex: Female

DRUGS (29)
  1. ACTEMRA [Suspect]
     Indication: RHEUMATOID ARTHRITIS
     Route: 041
     Dates: start: 20081211, end: 20090108
  2. URSO 250 [Concomitant]
     Dosage: FORM: PERORAL AGENT
     Route: 048
     Dates: start: 20090206, end: 20091210
  3. LOXOPROFEN SODIUM [Suspect]
     Route: 048
  4. TORSEMIDE [Concomitant]
     Route: 048
     Dates: start: 20101015, end: 20101022
  5. LOXOPROFEN SODIUM [Suspect]
     Indication: RHEUMATOID ARTHRITIS
     Dosage: FORM: ORAL FORMULATION (NOS)
     Route: 048
  6. PREDNISOLONE [Suspect]
     Indication: RHEUMATOID ARTHRITIS
     Route: 048
  7. LASIX [Concomitant]
     Dosage: FORM: ORAL FORMULATION (NOS)
     Route: 048
  8. LASIX [Concomitant]
     Route: 048
     Dates: start: 20090206, end: 20090402
  9. LASIX [Concomitant]
     Route: 048
  10. LASIX [Concomitant]
     Route: 048
     Dates: start: 20091211, end: 20100811
  11. ALENDRONATE SODIUM [Concomitant]
     Indication: PROPHYLAXIS
     Dosage: DRUG: BONALON 35 MG
     Route: 048
     Dates: start: 20090206, end: 20101022
  12. CANDESARTAN CILEXETIL [Concomitant]
     Route: 048
     Dates: start: 20090814, end: 20101022
  13. CYTOTEC [Concomitant]
     Indication: PROPHYLAXIS
     Route: 048
     Dates: start: 20090206, end: 20090315
  14. URSO 250 [Concomitant]
     Dosage: DOSE FORM;ORAL FORMULATION
     Route: 048
  15. MINOCYCLINE HCL [Concomitant]
     Indication: RHEUMATOID ARTHRITIS
     Dosage: FORM:PERORAL AGENT
     Route: 048
     Dates: start: 20090417, end: 20100812
  16. PROGRAF [Concomitant]
     Indication: RHEUMATOID ARTHRITIS
     Route: 048
     Dates: start: 20100527, end: 20100812
  17. LOXONIN [Concomitant]
     Route: 048
     Dates: start: 20091211
  18. PREDNISOLONE [Suspect]
     Route: 048
     Dates: start: 20101015, end: 20101022
  19. MICARDIS [Concomitant]
     Route: 048
     Dates: start: 20090206, end: 20090424
  20. URSO 250 [Concomitant]
     Route: 048
     Dates: start: 20091211, end: 20101022
  21. ASPIRIN [Suspect]
     Indication: RHEUMATOID ARTHRITIS
     Route: 048
  22. CYTOTEC [Concomitant]
     Route: 048
  23. MICARDIS [Concomitant]
     Route: 048
  24. FERROUS CITRATE [Concomitant]
     Dosage: FORM: ORAL FORMULATION (NOS)
     Route: 048
  25. CELECOXIB [Concomitant]
     Route: 048
     Dates: start: 20090206, end: 20101022
  26. FERROUS CITRATE [Concomitant]
     Dosage: FORM: PERORAL AGENT
     Route: 048
     Dates: start: 20090206, end: 20100811
  27. TORSEMIDE [Concomitant]
     Route: 048
     Dates: start: 20090424, end: 20090827
  28. MARZULENE [Concomitant]
     Route: 048
     Dates: start: 20091211, end: 20100815
  29. PREDNISOLONE [Concomitant]
     Dosage: DOSE:10
     Route: 042
     Dates: start: 20100811, end: 20101014

REACTIONS (9)
  - BLADDER CANCER [None]
  - GASTRIC ULCER [None]
  - SEPSIS [None]
  - GENERALISED OEDEMA [None]
  - SKIN INFECTION [None]
  - GENERAL PHYSICAL HEALTH DETERIORATION [None]
  - GASTROINTESTINAL STROMAL TUMOUR [None]
  - INFECTIVE SPONDYLITIS [None]
  - ARTHRITIS BACTERIAL [None]
